FAERS Safety Report 4546858-7 (Version None)
Quarter: 2005Q1

REPORT INFORMATION
  Report Type: 
  Country: None (occurrence: None)
  Receive Date: 20050106
  Receipt Date: 20030605
  Transmission Date: 20050727
  Serious: Yes (Hospitalization, Disabling, Other)
  Sender: FDA-Public Use
  Company Number: US-MERCK-0306USA00803

PATIENT
  Age: 39 Year
  Sex: Female

DRUGS (18)
  1. VIOXX [Suspect]
     Indication: FIBROMYALGIA
     Route: 048
     Dates: start: 19990101, end: 20010101
  2. VIOXX [Suspect]
     Indication: GASTROOESOPHAGEAL REFLUX DISEASE
     Route: 048
     Dates: start: 19990101, end: 20010101
  3. SEREVENT [Concomitant]
     Route: 065
  4. FLOVENT [Concomitant]
     Route: 065
  5. SINGULAIR [Concomitant]
     Route: 048
  6. TOPAMAX [Concomitant]
     Route: 065
  7. EFFEXOR [Concomitant]
     Route: 065
  8. CLARITIN [Concomitant]
     Route: 065
  9. KLONOPIN [Concomitant]
     Route: 065
  10. IMITREX [Concomitant]
     Route: 065
  11. SKELAXIN [Concomitant]
     Route: 065
  12. CYANOCOBALAMIN [Concomitant]
     Route: 051
  13. ZYRTEC [Concomitant]
     Route: 065
  14. BECLOVENT [Concomitant]
     Route: 065
  15. ZESTRIL [Concomitant]
     Route: 065
  16. DETROL [Concomitant]
     Route: 065
     Dates: end: 20010101
  17. MYSOLINE [Concomitant]
     Route: 065
  18. PRILOSEC [Concomitant]
     Route: 065
     Dates: end: 20010101

REACTIONS (63)
  - ACCIDENT AT WORK [None]
  - ADVERSE EVENT [None]
  - ANAEMIA MACROCYTIC [None]
  - ANXIETY [None]
  - ARTHRALGIA [None]
  - ARTHROPATHY [None]
  - ASTHMA [None]
  - BACK PAIN [None]
  - BALANCE DISORDER [None]
  - BIPOLAR DISORDER [None]
  - BLOOD CHOLESTEROL INCREASED [None]
  - BLOOD MAGNESIUM DECREASED [None]
  - BLOOD PRESSURE DECREASED [None]
  - BLOOD TRIGLYCERIDES INCREASED [None]
  - BONE GRAFT [None]
  - BONE PAIN [None]
  - BRAIN OEDEMA [None]
  - BREAST DISORDER [None]
  - BRONCHITIS [None]
  - CANDIDIASIS [None]
  - CEREBRAL INFARCTION [None]
  - CEREBROVASCULAR ACCIDENT [None]
  - CONDITION AGGRAVATED [None]
  - CONTUSION [None]
  - COUGH [None]
  - DIZZINESS [None]
  - DRUG SCREEN POSITIVE [None]
  - DYSKINESIA [None]
  - ELECTROLYTE IMBALANCE [None]
  - FALL [None]
  - HEADACHE [None]
  - HERPES SIMPLEX [None]
  - HYPERTENSION [None]
  - HYPOGLYCAEMIA [None]
  - IMPULSIVE BEHAVIOUR [None]
  - INJURY [None]
  - INSOMNIA [None]
  - INTERVERTEBRAL DISC DISORDER [None]
  - JOINT INJURY [None]
  - LACERATION [None]
  - MENOPAUSE [None]
  - MIGRAINE [None]
  - MITRAL VALVE INCOMPETENCE [None]
  - MUSCLE SPASMS [None]
  - NEURALGIA [None]
  - OVARIAN CYST RUPTURED [None]
  - PIRIFORMIS SYNDROME [None]
  - PNEUMONIA [None]
  - PROCEDURAL COMPLICATION [None]
  - PULMONARY CONGESTION [None]
  - RHINITIS ALLERGIC [None]
  - ROSACEA [None]
  - SIMPLE PARTIAL SEIZURES [None]
  - SPINAL DISORDER [None]
  - STAPHYLOCOCCAL INFECTION [None]
  - SYNCOPE [None]
  - TENDON INJURY [None]
  - TREMOR [None]
  - TRICUSPID VALVE INCOMPETENCE [None]
  - URGE INCONTINENCE [None]
  - URINARY TRACT INFECTION [None]
  - UTERINE LEIOMYOMA [None]
  - WEIGHT DECREASED [None]
